FAERS Safety Report 24445264 (Version 1)
Quarter: 2024Q4

REPORT INFORMATION
  Report Type: Spontaneous
  Country: JP (occurrence: JP)
  Receive Date: 20241016
  Receipt Date: 20241016
  Transmission Date: 20250114
  Serious: Yes (Life-Threatening, Hospitalization, Other)
  Sender: PFIZER
  Company Number: JP-MLMSERVICE-20241003-PI217213-00082-1

PATIENT
  Age: 85 Year
  Sex: Male

DRUGS (3)
  1. PACLITAXEL [Suspect]
     Active Substance: PACLITAXEL
     Indication: Nasal sinus cancer
     Dosage: UNK, CYCLIC (INDUCTION DRUG THERAPY)
     Dates: start: 2022
  2. CARBOPLATIN [Suspect]
     Active Substance: CARBOPLATIN
     Indication: Nasal sinus cancer
     Dosage: UNK, CYCLIC (INDUCTION DRUG THERAPY)
     Dates: start: 2022
  3. CETUXIMAB [Suspect]
     Active Substance: CETUXIMAB
     Indication: Nasal sinus cancer
     Dosage: UNK, CYCLIC (INDUCTION DRUG THERAPY)
     Dates: start: 2022

REACTIONS (7)
  - Intestinal haemorrhage [Recovering/Resolving]
  - Intestinal ischaemia [Recovering/Resolving]
  - Gastrointestinal necrosis [Recovering/Resolving]
  - Circulatory collapse [Recovering/Resolving]
  - Pneumonia aspiration [Unknown]
  - Cognitive disorder [Unknown]
  - Off label use [Unknown]

NARRATIVE: CASE EVENT DATE: 20220101
